FAERS Safety Report 5217472-5 (Version None)
Quarter: 2007Q1

REPORT INFORMATION
  Report Type: 
  Country: None (occurrence: None)
  Receive Date: 20070119
  Receipt Date: 20070104
  Transmission Date: 20070707
  Serious: Yes (Death, Hospitalization)
  Sender: FDA-Public Use
  Company Number: 2006001567

PATIENT
  Sex: Male

DRUGS (2)
  1. TARCEVA [Suspect]
     Dates: start: 20060625
  2. AMIODARONE HCL [Suspect]
     Dates: start: 20040415

REACTIONS (5)
  - BRONCHIAL CARCINOMA [None]
  - COUGH [None]
  - HAEMOGLOBIN DECREASED [None]
  - INFECTIVE EXACERBATION OF CHRONIC OBSTRUCTIVE AIRWAYS DISEASE [None]
  - LEFT VENTRICULAR FAILURE [None]
